FAERS Safety Report 6143787-2 (Version None)
Quarter: 2009Q2

REPORT INFORMATION
  Report Type: 
  Country: None (occurrence: None)
  Receive Date: 20090403
  Receipt Date: 20090327
  Transmission Date: 20091009
  Serious: Yes (Other)
  Sender: FDA-Public Use
  Company Number: PHHY2009JP07252

PATIENT
  Age: 31 Year
  Sex: Male

DRUGS (1)
  1. NEORAL [Suspect]
     Indication: RENAL TRANSPLANT
     Dosage: UNK
     Route: 048
     Dates: start: 20081225, end: 20090226

REACTIONS (2)
  - BLOOD CHLORIDE INCREASED [None]
  - RENAL TUBULAR ACIDOSIS [None]
